FAERS Safety Report 4354698-7 (Version None)
Quarter: 2004Q2

REPORT INFORMATION
  Report Type: 
  Country: None (occurrence: None)
  Receive Date: 20040503
  Receipt Date: 20040427
  Transmission Date: 20050107
  Serious: Yes (Life-Threatening, Hospitalization)
  Sender: FDA-Public Use
  Company Number: USA-2004-0013226

PATIENT
  Age: 61 Year
  Sex: Female
  Weight: 40.7 kg

DRUGS (10)
  1. MS CONTIN [Suspect]
     Dosage: SEE IMAGE
     Route: 048
     Dates: start: 20040212
  2. MS CONTIN [Suspect]
     Dosage: SEE IMAGE
     Route: 048
     Dates: start: 20040413
  3. COLACE (DOCUSATE SODIUM) [Suspect]
     Dosage: 100 MG, BID
     Dates: start: 20040206
  4. FENTANYL [Suspect]
     Dosage: 50 MCG, Q12H
     Dates: start: 20040216
  5. DILAUDID [Suspect]
  6. AMITRIPTYLINE HCL [Concomitant]
  7. HEPARIN [Concomitant]
  8. FLOVENT [Concomitant]
  9. LACTULOSE [Concomitant]
  10. TYLENOL (CAPLET) [Concomitant]

REACTIONS (4)
  - ABDOMINAL PAIN [None]
  - CARDIO-RESPIRATORY ARREST [None]
  - LETHARGY [None]
  - RESPIRATORY DEPRESSION [None]
